FAERS Safety Report 25501908 (Version 2)
Quarter: 2025Q3

REPORT INFORMATION
  Report Type: Spontaneous
  Country: CN (occurrence: CN)
  Receive Date: 20250702
  Receipt Date: 20250708
  Transmission Date: 20251021
  Serious: Yes (Hospitalization, Other)
  Sender: NOVARTIS
  Company Number: CN-002147023-NVSC2025CN103113

PATIENT
  Age: 61 Year
  Sex: Male

DRUGS (1)
  1. SACUBITRIL\VALSARTAN [Suspect]
     Active Substance: SACUBITRIL\VALSARTAN
     Indication: Hypertension
     Dosage: 200 MG, QD
     Route: 048
     Dates: start: 20250507, end: 20250614

REACTIONS (6)
  - Face oedema [Recovering/Resolving]
  - Angioedema [Recovering/Resolving]
  - Renal failure [Unknown]
  - Rash [Unknown]
  - Oedema peripheral [Recovering/Resolving]
  - Hypoproteinaemia [Unknown]

NARRATIVE: CASE EVENT DATE: 20250611
